FAERS Safety Report 7895120-3 (Version None)
Quarter: 2011Q4

REPORT INFORMATION
  Report Type: 
  Country: None (occurrence: None)
  Receive Date: 20111102
  Receipt Date: 20111026
  Transmission Date: 20120403
  Serious: Yes (Other)
  Sender: FDA-Public Use
  Company Number: AUR-APL-2011-05643

PATIENT
  Sex: Female

DRUGS (2)
  1. VENLAFAXINE [Suspect]
     Indication: PRODUCT USED FOR UNKNOWN INDICATION
  2. EFFEXOR XR [Suspect]
     Indication: PRODUCT USED FOR UNKNOWN INDICATION
     Dosage: (75 MG), ORAL
     Route: 048

REACTIONS (6)
  - AGITATION [None]
  - PRODUCT SUBSTITUTION ISSUE [None]
  - PARAESTHESIA [None]
  - DRUG DOSE OMISSION [None]
  - DRUG DEPENDENCE [None]
  - UNEVALUABLE EVENT [None]
